FAERS Safety Report 5520555-3 (Version None)
Quarter: 2007Q4

REPORT INFORMATION
  Report Type: 
  Country: None (occurrence: None)
  Receive Date: 20071115
  Receipt Date: 20071101
  Transmission Date: 20080405
  Serious: Yes (Death)
  Sender: FDA-Public Use
  Company Number: 2007S1000422

PATIENT
  Age: 51 Year
  Sex: Male

DRUGS (6)
  1. CUBICIN [Suspect]
     Indication: ENTEROCOCCAL BACTERAEMIA
     Dosage: 400 MG;Q24H;IV
     Route: 042
  2. CUBICIN [Suspect]
     Indication: PATHOGEN RESISTANCE
     Dosage: 400 MG;Q24H;IV
     Route: 042
  3. MEROPENEM [Concomitant]
  4. AMPICILLIN W/SULBACTAM [Concomitant]
  5. CASPOFUNGIN [Concomitant]
  6. DOXYCYCLINE [Concomitant]

REACTIONS (2)
  - LIVER TRANSPLANT REJECTION [None]
  - SEPSIS [None]
